FAERS Safety Report 7526074-7 (Version None)
Quarter: 2011Q2

REPORT INFORMATION
  Report Type: 
  Country: None (occurrence: None)
  Receive Date: 20110606
  Receipt Date: 20110603
  Transmission Date: 20111010
  Serious: Yes (Death, Life-Threatening, Hospitalization, Other)
  Sender: FDA-Public Use
  Company Number: JP-BRISTOL-MYERS SQUIBB COMPANY-15013212

PATIENT
  Age: 59 Year
  Sex: Male

DRUGS (6)
  1. HYDREA [Suspect]
     Indication: CHRONIC MYELOID LEUKAEMIA
     Route: 048
     Dates: start: 20100121, end: 20100203
  2. DORIPENEM MONOHYDRATE [Concomitant]
     Dosage: INJ
     Route: 042
     Dates: start: 20100524, end: 20100525
  3. MAXIPIME [Concomitant]
     Route: 042
     Dates: start: 20100517, end: 20100524
  4. SPRYCEL [Suspect]
     Indication: CHRONIC MYELOID LEUKAEMIA
     Dosage: DOSE INC TO 100 MG(15JAN10-25MAY10) 15JAN-03MAR10,100MG 07MAR-22MAR10,50MG 28MAR-22MAY10,50MG
     Route: 048
     Dates: start: 20100115, end: 20100522
  5. CYTARABINE [Suspect]
     Indication: CHRONIC MYELOID LEUKAEMIA
     Dosage: 7MR-7MR10 8MR-11MR10 12MR-15MR10 16MR-16MR10 29MR-30MAR10 80MG 120MG 40MG 20MG 100MG
     Route: 042
     Dates: start: 20100401, end: 20100518
  6. AMBISOME [Suspect]
     Route: 042
     Dates: start: 20100122, end: 20100402

REACTIONS (9)
  - PLATELET COUNT DECREASED [None]
  - PLEURAL EFFUSION [None]
  - ANAEMIA [None]
  - WHITE BLOOD CELL COUNT DECREASED [None]
  - TUMOUR LYSIS SYNDROME [None]
  - RENAL FAILURE ACUTE [None]
  - SEPSIS [None]
  - HYPOCALCAEMIA [None]
  - PNEUMONIA [None]
